FAERS Safety Report 4753109-7 (Version None)
Quarter: 2005Q3

REPORT INFORMATION
  Report Type: 
  Country: None (occurrence: None)
  Receive Date: 20050826
  Receipt Date: 20050519
  Transmission Date: 20060218
  Serious: Yes (Hospitalization, Disabling)
  Sender: FDA-Public Use
  Company Number: US-MERCK-0505USA02332

PATIENT
  Age: 43 Year
  Sex: Male
  Weight: 77 kg

DRUGS (2)
  1. VIOXX [Suspect]
     Indication: MYALGIA INTERCOSTAL
     Route: 048
     Dates: start: 20011216, end: 20011219
  2. ACIPHEX [Concomitant]
     Route: 065

REACTIONS (4)
  - ACUTE MYOCARDIAL INFARCTION [None]
  - BACK PAIN [None]
  - BLOOD CHOLESTEROL INCREASED [None]
  - SWELLING [None]
